FAERS Safety Report 4716826-0 (Version None)
Quarter: 2005Q3

REPORT INFORMATION
  Report Type: 
  Country: None (occurrence: None)
  Receive Date: 20050714
  Receipt Date: 20050704
  Transmission Date: 20060218
  Serious: Yes (Hospitalization)
  Sender: FDA-Public Use
  Company Number: 2005093331

PATIENT
  Age: 59 Year
  Sex: Male
  Weight: 77.5 kg

DRUGS (6)
  1. GENOTROPIN [Suspect]
     Indication: HYPOPITUITARISM
     Dosage: 1.1 MG (1.1 MG, DAILY), SUBCUTANEOUS
     Route: 058
     Dates: start: 19980603
  2. HYDROCORTISONE [Concomitant]
  3. DDAVP [Concomitant]
  4. TESTOSTERONE [Concomitant]
  5. NEURONTIN [Concomitant]
  6. AMITRIPTYLINE HCL [Concomitant]

REACTIONS (1)
  - JOINT DISLOCATION [None]
